FAERS Safety Report 10158930 (Version 1)
Quarter: 2014Q2

REPORT INFORMATION
  Report Type: Spontaneous
  Country: US (occurrence: US)
  Receive Date: 20140508
  Receipt Date: 20140508
  Transmission Date: 20141212
  Serious: No
  Sender: FDA-Public Use
  Company Number: US-BIOGENIDEC-2014BI039561

PATIENT
  Sex: Female

DRUGS (5)
  1. TECFIDERA [Suspect]
     Indication: MULTIPLE SCLEROSIS
     Route: 048
     Dates: start: 201402
  2. AMITRIPTYLINE [Concomitant]
  3. FEXOFENADINE [Concomitant]
  4. LEXAPRO [Concomitant]
  5. VITAMIN B [Concomitant]

REACTIONS (2)
  - Decreased appetite [Unknown]
  - Flushing [Unknown]
